FAERS Safety Report 9909997 (Version 2)
Quarter: 2014Q1

REPORT INFORMATION
  Report Type: Spontaneous
  Country: US (occurrence: US)
  Receive Date: 20140219
  Receipt Date: 20140226
  Transmission Date: 20141002
  Serious: Yes (Hospitalization)
  Sender: FDA-Public Use
  Company Number: US-B.I. PHARMACEUTICALS,INC./RIDGEFIELD-2014-BI-07025BP

PATIENT
  Age: 67 Year
  Sex: Female
  Weight: 28 kg

DRUGS (6)
  1. DULCOLAX TABLETS [Suspect]
     Indication: CONSTIPATION
     Dosage: 2 TABLETS
     Route: 048
     Dates: start: 20140118, end: 20140118
  2. DULCOLAX TABLETS [Suspect]
     Dosage: 1 TABLET
     Route: 048
     Dates: start: 20140201, end: 20140201
  3. DULCOLAX TABLETS [Suspect]
     Dosage: 1 TABLET
     Route: 048
     Dates: start: 20140213, end: 20140213
  4. PROZAC [Concomitant]
     Indication: DEPRESSION
     Dosage: 25 MG
     Route: 048
     Dates: start: 2010
  5. SIMVASTATIN [Concomitant]
     Indication: CORONARY ARTERY DISEASE
     Dosage: 10 MG
     Route: 048
     Dates: start: 2011
  6. LEVOTHYROXINE [Concomitant]
     Indication: THYROID FUNCTION TEST ABNORMAL
     Dosage: 50 MCG
     Route: 048

REACTIONS (5)
  - Colitis ischaemic [Recovered/Resolved]
  - Megacolon [Unknown]
  - Haematochezia [Recovered/Resolved]
  - Abdominal pain [Recovered/Resolved]
  - Abdominal pain [Recovered/Resolved]
